FAERS Safety Report 24954969 (Version 1)
Quarter: 2025Q1

REPORT INFORMATION
  Report Type: Spontaneous
  Country: US (occurrence: None)
  Receive Date: 20250210
  Receipt Date: 20250210
  Transmission Date: 20250409
  Serious: Yes (Disabling)
  Sender: FDA-CTU
  Company Number: None

PATIENT
  Age: 49 Year
  Sex: Female
  Weight: 63 kg

DRUGS (1)
  1. DEPO-PROVERA [Suspect]
     Active Substance: MEDROXYPROGESTERONE ACETATE
     Indication: Menstrual disorder
     Dates: start: 20250115

REACTIONS (5)
  - Dizziness [None]
  - Dizziness [None]
  - Dizziness [None]
  - Impaired driving ability [None]
  - Heavy menstrual bleeding [None]

NARRATIVE: CASE EVENT DATE: 20250115
